FAERS Safety Report 6407049-8 (Version None)
Quarter: 2009Q4

REPORT INFORMATION
  Report Type: 
  Country: None (occurrence: None)
  Receive Date: 20091020
  Receipt Date: 20091015
  Transmission Date: 20100525
  Serious: Yes (Death, Hospitalization, Other)
  Sender: FDA-Public Use
  Company Number: PHHY2009JP30881

PATIENT
  Sex: Male
  Weight: 47 kg

DRUGS (11)
  1. ZOMETA [Suspect]
     Indication: HYPERCALCAEMIA OF MALIGNANCY
     Dosage: 4MG (PER ADMINISTRATION)
     Route: 042
     Dates: start: 20081031, end: 20090703
  2. ZOMETA [Suspect]
     Indication: METASTASES TO BONE
     Dosage: 4 MG ONCE A WEEK
     Route: 042
  3. TAKEPRON [Concomitant]
     Indication: REFLUX OESOPHAGITIS
     Dosage: 15 MG, UNK
     Route: 048
     Dates: start: 20081107, end: 20090731
  4. LOXONIN [Concomitant]
     Indication: TUMOUR ASSOCIATED FEVER
     Dosage: 180 MG, UNK
     Route: 048
     Dates: start: 20081118, end: 20090731
  5. OXYCONTIN [Concomitant]
     Indication: CANCER PAIN
     Dosage: 10 MG, UNK
     Route: 048
     Dates: start: 20090130, end: 20090502
  6. DUROTEP [Concomitant]
     Indication: CANCER PAIN
     Dosage: 12.6 MG, UNK
     Route: 061
     Dates: start: 20090502, end: 20090805
  7. PREDONINE [Concomitant]
     Indication: HYPERCALCAEMIA OF MALIGNANCY
     Dosage: 20 MG, UNK
     Route: 048
     Dates: start: 20090526, end: 20090731
  8. OXINORM [Concomitant]
     Route: 048
  9. MUCOSTA [Concomitant]
     Route: 048
  10. MAGMITT [Concomitant]
     Route: 048
  11. TPN [Concomitant]
     Route: 048

REACTIONS (9)
  - DECREASED APPETITE [None]
  - GENERAL PHYSICAL HEALTH DETERIORATION [None]
  - HYPERCALCAEMIA [None]
  - HYPOPHAGIA [None]
  - INAPPROPRIATE SCHEDULE OF DRUG ADMINISTRATION [None]
  - MALIGNANT NEOPLASM PROGRESSION [None]
  - OSTEONECROSIS [None]
  - SOMNOLENCE [None]
  - SWELLING [None]
